FAERS Safety Report 25227688 (Version 2)
Quarter: 2025Q3

REPORT INFORMATION
  Report Type: Spontaneous
  Country: CN (occurrence: CN)
  Receive Date: 20250422
  Receipt Date: 20250819
  Transmission Date: 20251020
  Serious: Yes (Other)
  Sender: ALEXION PHARMACEUTICALS
  Company Number: CN-AstraZeneca-CH-00852232A

PATIENT
  Age: 65 Year
  Sex: Male

DRUGS (1)
  1. BUDESONIDE\FORMOTEROL\GLYCOPYRRONIUM [Suspect]
     Active Substance: BUDESONIDE\FORMOTEROL\GLYCOPYRRONIUM
     Indication: Chronic obstructive pulmonary disease
     Dosage: TWO SPRAYS IN THE MORNING AND TWO SPRAYS IN THE EVENING EVERY DAY
     Route: 065

REACTIONS (2)
  - Asphyxia [Unknown]
  - Therapeutic product effect variable [Unknown]
